FAERS Safety Report 4739954-2 (Version None)
Quarter: 2005Q3

REPORT INFORMATION
  Report Type: 
  Country: None (occurrence: None)
  Receive Date: 20050810
  Receipt Date: 20030923
  Transmission Date: 20060218
  Serious: No
  Sender: FDA-Public Use
  Company Number: US-GLAXOSMITHKLINE-A0429337A

PATIENT
  Age: 31 Year
  Sex: Female

DRUGS (3)
  1. PAXIL [Suspect]
     Indication: PANIC DISORDER
     Route: 048
     Dates: start: 19980420, end: 20011211
  2. ATIVAN [Concomitant]
     Dosage: .5MG AS REQUIRED
  3. SYNTHROID [Concomitant]
     Indication: HYPERTHYROIDISM

REACTIONS (5)
  - CHEST PAIN [None]
  - DRUG WITHDRAWAL SYNDROME [None]
  - FATIGUE [None]
  - HEADACHE [None]
  - HYPOAESTHESIA [None]
